FAERS Safety Report 10086096 (Version 6)
Quarter: 2014Q2

REPORT INFORMATION
  Report Type: Spontaneous
  Country: US (occurrence: US)
  Receive Date: 20140418
  Receipt Date: 20140620
  Transmission Date: 20141212
  Serious: No
  Sender: FDA-Public Use
  Company Number: US-009507513-1202USA00546

PATIENT
  Sex: Male
  Weight: 107.94 kg

DRUGS (4)
  1. PROSCAR [Suspect]
     Indication: ALOPECIA
     Dosage: 5 MG, 1/2 TABLET QD
     Route: 048
     Dates: start: 2002, end: 20060502
  2. PROSCAR [Suspect]
     Dosage: 1 MG, QD
     Route: 048
     Dates: start: 2002
  3. PROSCAR [Suspect]
     Dosage: 5 MG, QD
     Route: 048
     Dates: start: 20030125
  4. PROPECIA [Suspect]
     Dosage: UNK
     Route: 048
     Dates: start: 2002

REACTIONS (15)
  - Cognitive disorder [Not Recovered/Not Resolved]
  - Anxiety [Not Recovered/Not Resolved]
  - Drug administration error [Unknown]
  - Genital lesion [Unknown]
  - Wrong technique in drug usage process [Unknown]
  - Hyperlipidaemia [Unknown]
  - Prostatitis [Unknown]
  - Epididymitis [Unknown]
  - Balanoposthitis [Unknown]
  - Muscle strain [Unknown]
  - Stress [Unknown]
  - Loss of libido [Unknown]
  - Erectile dysfunction [Unknown]
  - Sexual dysfunction [Not Recovered/Not Resolved]
  - Depression [Not Recovered/Not Resolved]
